FAERS Safety Report 18278368 (Version 1)
Quarter: 2020Q3

REPORT INFORMATION
  Report Type: Spontaneous
  Country: US (occurrence: US)
  Receive Date: 20200917
  Receipt Date: 20200917
  Transmission Date: 20201103
  Serious: Yes (Death)
  Sender: FDA-Public Use
  Company Number: None

PATIENT
  Age: 75 Year
  Sex: Female

DRUGS (22)
  1. LORATADINE. [Concomitant]
     Active Substance: LORATADINE
  2. NADOLOL. [Concomitant]
     Active Substance: NADOLOL
  3. LANTUS [Concomitant]
     Active Substance: INSULIN GLARGINE
  4. UNTHROID, VIT B12, VIT C [Concomitant]
  5. CALICUM/D [Concomitant]
  6. FOLIC ACID. [Concomitant]
     Active Substance: FOLIC ACID
  7. CALCITRIOL. [Concomitant]
     Active Substance: CALCITRIOL
  8. FLUTICASONE. [Concomitant]
     Active Substance: FLUTICASONE
  9. HUMALOG [Concomitant]
     Active Substance: INSULIN LISPRO
  10. LOSARTAN. [Concomitant]
     Active Substance: LOSARTAN
  11. TOESEMIDE [Concomitant]
  12. DIGESTIVE [Concomitant]
  13. FAMOTIDINE. [Concomitant]
     Active Substance: FAMOTIDINE
  14. LACTASE ENZ [Concomitant]
  15. SIMVASTATIN. [Concomitant]
     Active Substance: SIMVASTATIN
  16. SYMBICORT [Concomitant]
     Active Substance: BUDESONIDE\FORMOTEROL FUMARATE DIHYDRATE
  17. TYLENOL [Concomitant]
     Active Substance: ACETAMINOPHEN
  18. PROLIA [Suspect]
     Active Substance: DENOSUMAB
     Indication: SENILE OSTEOPOROSIS
     Dosage: ?          OTHER FREQUENCY:EVERY 6 MONTHS;?
     Route: 058
     Dates: start: 20170707, end: 20200720
  19. ALLOPURINOL. [Concomitant]
     Active Substance: ALLOPURINOL
  20. DIVALPROEX [Concomitant]
     Active Substance: DIVALPROEX SODIUM
  21. PROCRIT [Concomitant]
     Active Substance: ERYTHROPOIETIN
  22. TRAMADOL. [Concomitant]
     Active Substance: TRAMADOL

REACTIONS (1)
  - Death [None]

NARRATIVE: CASE EVENT DATE: 20200720
